FAERS Safety Report 10404433 (Version 1)
Quarter: 2014Q1

REPORT INFORMATION
  Report Type: Spontaneous
  Country: US (occurrence: None)
  Receive Date: 20140214
  Receipt Date: 20140214
  Transmission Date: 20141002
  Serious: No
  Sender: FDA-Public Use
  Company Number: A-NJ2013-92781

PATIENT
  Age: 70 Year
  Sex: Female

DRUGS (1)
  1. OPSUMIT (MACITENTAN) [Suspect]
     Indication: PRODUCT USED FOR UNKNOWN INDICATION
     Route: 048
     Dates: start: 20131112

REACTIONS (4)
  - Chills [None]
  - Chest discomfort [None]
  - Dyspnoea [None]
  - Dizziness [None]
